FAERS Safety Report 24691979 (Version 1)
Quarter: 2024Q4

REPORT INFORMATION
  Report Type: Spontaneous
  Country: US (occurrence: None)
  Receive Date: 20241203
  Receipt Date: 20241203
  Transmission Date: 20250114
  Serious: No
  Sender: Public
  Company Number: None

PATIENT
  Sex: 0

DRUGS (1)
  1. ATIVAN [Suspect]
     Active Substance: LORAZEPAM

REACTIONS (5)
  - Treatment failure [None]
  - Condition aggravated [None]
  - Gastrointestinal disorder [None]
  - Headache [None]
  - Libido decreased [None]
